FAERS Safety Report 5357393-0 (Version None)
Quarter: 2007Q2

REPORT INFORMATION
  Report Type: 
  Country: None (occurrence: None)
  Receive Date: 20070612
  Receipt Date: 20070612
  Transmission Date: 20071010
  Serious: Yes (Hospitalization, Other)
  Sender: FDA-Public Use
  Company Number: None

PATIENT
  Sex: Male
  Weight: 71.4 kg

DRUGS (3)
  1. TIPRANAVIR 250MG BOEHRINGER INGELHEIM [Suspect]
     Dosage: 500 MG BID PO
     Route: 048
     Dates: start: 20070527, end: 20070604
  2. ROSUVASTATIN [Concomitant]
  3. RITONAVIR [Concomitant]

REACTIONS (6)
  - DRUG ERUPTION [None]
  - DYSPNOEA [None]
  - LIP SWELLING [None]
  - ORAL SOFT TISSUE DISORDER [None]
  - RASH [None]
  - WHEEZING [None]
